FAERS Safety Report 4672632-7 (Version None)
Quarter: 2005Q2

REPORT INFORMATION
  Report Type: 
  Country: None (occurrence: None)
  Receive Date: 20050524
  Receipt Date: 20050509
  Transmission Date: 20051028
  Serious: Yes (Other)
  Sender: FDA-Public Use
  Company Number: US-GLAXOSMITHKLINE-A0557676A

PATIENT
  Age: 47 Year
  Sex: Female

DRUGS (1)
  1. COMMIT [Suspect]
     Dosage: 4MG VARIABLE DOSE
     Route: 002
     Dates: start: 20030101

REACTIONS (1)
  - RHEUMATOID ARTHRITIS [None]
